FAERS Safety Report 8394771-X (Version None)
Quarter: 2012Q1

REPORT INFORMATION
  Report Type: 
  Country: None (occurrence: None)
  Receive Date: 20120323
  Receipt Date: 20110504
  Transmission Date: 20120608
  Serious: Yes (Other)
  Sender: FDA-Public Use
  Company Number: 163-21880-11050448

PATIENT
  Age: 70 Year
  Sex: Male
  Weight: 75.4 kg

DRUGS (14)
  1. FINASTERIDE [Concomitant]
  2. REVLIMID [Suspect]
     Indication: MULTIPLE MYELOMA
     Dosage: 25 MG, FOR 21 DAYS, PO; 25 MG, FOR 21 DAYS, PO; 15 MG, FOR 21 DAYS, PO
     Route: 048
     Dates: start: 20110301, end: 20110101
  3. REVLIMID [Suspect]
     Indication: MULTIPLE MYELOMA
     Dosage: 25 MG, FOR 21 DAYS, PO; 25 MG, FOR 21 DAYS, PO; 15 MG, FOR 21 DAYS, PO
     Route: 048
     Dates: start: 20110501
  4. REVLIMID [Suspect]
     Indication: MULTIPLE MYELOMA
     Dosage: 25 MG, FOR 21 DAYS, PO; 25 MG, FOR 21 DAYS, PO; 15 MG, FOR 21 DAYS, PO
     Route: 048
     Dates: start: 20100601
  5. NEXIUM [Concomitant]
  6. MULTI-VIT (MULTI-VIT) [Concomitant]
  7. CALCIUM [Concomitant]
  8. VITAMIN B COMPLEX CAP [Concomitant]
  9. XANAX [Concomitant]
  10. ASPIRIN [Concomitant]
  11. DOXAZOSIN [Concomitant]
  12. VITAMIN D [Concomitant]
  13. LYRICA [Concomitant]
  14. RESTORIL [Concomitant]

REACTIONS (2)
  - PLATELET COUNT DECREASED [None]
  - WHITE BLOOD CELL COUNT DECREASED [None]
